FAERS Safety Report 4333789-0 (Version None)
Quarter: 2004Q2

REPORT INFORMATION
  Report Type: 
  Country: None (occurrence: None)
  Receive Date: 20040406
  Receipt Date: 20040406
  Transmission Date: 20050107
  Serious: Yes (Hospitalization)
  Sender: FDA-Public Use
  Company Number: None

PATIENT
  Age: 59 Year
  Sex: Male

DRUGS (7)
  1. CELECOXIB 100 MG [Suspect]
     Indication: GASTRIC CANCER STAGE IV WITH METASTASES
     Dosage: 400 MG BID ORAL
     Route: 048
     Dates: start: 20040224, end: 20040329
  2. ETOPOSIDE [Suspect]
     Dosage: 50 QD ORAL
     Route: 048
     Dates: start: 20040224, end: 20040429
  3. PREVACID [Concomitant]
  4. ATIVAN [Concomitant]
  5. VICODIN [Concomitant]
  6. ZOFRAN [Concomitant]
  7. REGLAN [Concomitant]

REACTIONS (2)
  - CONCOMITANT DISEASE PROGRESSION [None]
  - DEEP VEIN THROMBOSIS [None]
